FAERS Safety Report 4934849-3 (Version None)
Quarter: 2006Q1

REPORT INFORMATION
  Report Type: 
  Country: None (occurrence: None)
  Receive Date: 20060303
  Receipt Date: 20060216
  Transmission Date: 20060701
  Serious: Yes (Hospitalization)
  Sender: FDA-Public Use
  Company Number: SGB1-2006-00128

PATIENT
  Age: 91 Year
  Sex: Female

DRUGS (5)
  1. MIDODRINE (MIDODRINE) TABLET [Suspect]
     Dosage: 2.5 MG, 2X/DAY: BID, ORAL
     Route: 048
     Dates: start: 20060105, end: 20060111
  2. NEXIUM [Concomitant]
  3. VASTAREL (TRIMETAZIDINE HYDROCHLORIDE) [Concomitant]
  4. FERO GRAD LP VITAMINE C (FERROUS SULFATE EXSICCATED, ASCORBIC ACID) [Concomitant]
  5. FORASEQ (BUDESONIDE, FORMOTEROL) [Concomitant]

REACTIONS (3)
  - ARTHRALGIA [None]
  - CUTANEOUS VASCULITIS [None]
  - PURPURA [None]
